FAERS Safety Report 8286714-4 (Version None)
Quarter: 2012Q2

REPORT INFORMATION
  Report Type: 
  Country: None (occurrence: None)
  Receive Date: 20120416
  Receipt Date: 20120405
  Transmission Date: 20120825
  Serious: Yes (Other)
  Sender: FDA-Public Use
  Company Number: GB-JNJFOC-20120204751

PATIENT
  Age: 38 Year
  Sex: Male
  Weight: 70 kg

DRUGS (7)
  1. SEPTRA [Concomitant]
     Indication: PNEUMOCYSTIS JIROVECI INFECTION
     Route: 065
     Dates: start: 20111125, end: 20111216
  2. COTRIM [Concomitant]
     Indication: PNEUMOCYSTIS JIROVECI INFECTION
     Route: 042
     Dates: start: 20111103
  3. TRUVADA [Concomitant]
     Indication: HIV INFECTION
     Route: 065
     Dates: start: 20111123, end: 20111216
  4. RITONAVIR [Concomitant]
     Indication: HIV INFECTION
     Route: 065
     Dates: start: 20111123, end: 20111216
  5. EFAVIRENZ [Concomitant]
     Indication: PRODUCT USED FOR UNKNOWN INDICATION
     Route: 065
  6. PREDNISOLONE [Concomitant]
     Indication: PRODUCT USED FOR UNKNOWN INDICATION
     Route: 042
     Dates: start: 20111103
  7. PREZISTA [Suspect]
     Indication: HIV INFECTION
     Route: 048
     Dates: start: 20111123, end: 20111216

REACTIONS (2)
  - RASH ERYTHEMATOUS [None]
  - PYREXIA [None]
